FAERS Safety Report 10085694 (Version 2)
Quarter: 2014Q2

REPORT INFORMATION
  Report Type: Report from Study
  Country: KR (occurrence: KR)
  Receive Date: 20140418
  Receipt Date: 20140515
  Transmission Date: 20141212
  Serious: No
  Sender: FDA-Public Use
  Company Number: KR-JNJFOC-20140304530

PATIENT
  Age: 47 Year
  Sex: Male

DRUGS (2)
  1. STELARA [Suspect]
     Indication: PSORIASIS
     Route: 058
     Dates: start: 20130428, end: 20130428
  2. XAMIOL [Concomitant]
     Indication: PSORIASIS
     Route: 061
     Dates: start: 20130316

REACTIONS (1)
  - Liver function test abnormal [Recovered/Resolved]
